FAERS Safety Report 6505567-5 (Version None)
Quarter: 2009Q4

REPORT INFORMATION
  Report Type: 
  Country: None (occurrence: None)
  Receive Date: 20091217
  Receipt Date: 20091217
  Transmission Date: 20100525
  Serious: Yes (Disabling, Other)
  Sender: FDA-Public Use
  Company Number: None

PATIENT
  Age: 49 Year
  Sex: Female
  Weight: 131.5431 kg

DRUGS (3)
  1. MOBAN [Suspect]
     Indication: SCHIZOPHRENIA
     Dosage: 10MG 1XPER DAY P.O.
     Route: 048
     Dates: start: 20090401
  2. ABILIFY [Suspect]
     Indication: SCHIZOPHRENIA
     Dosage: 15MG 1XPER DAY P.O.
     Route: 048
     Dates: start: 20090101, end: 20090501
  3. GEODON [Concomitant]

REACTIONS (2)
  - MUSCULOSKELETAL STIFFNESS [None]
  - PYREXIA [None]
